FAERS Safety Report 4568451-2 (Version None)
Quarter: 2005Q1

REPORT INFORMATION
  Report Type: 
  Country: None (occurrence: None)
  Receive Date: 20050131
  Receipt Date: 20050113
  Transmission Date: 20050727
  Serious: Yes (Hospitalization)
  Sender: FDA-Public Use
  Company Number: ACO_0028_2004

PATIENT
  Age: 48 Year
  Sex: Female

DRUGS (6)
  1. TIZANIDINE HCL [Suspect]
     Indication: HYPERTONIA
     Dosage: 2 MG ONCE PO
     Route: 048
  2. LISINOPRIL [Suspect]
     Indication: BLOOD PRESSURE
     Dosage: 10 MG QDAY PO
     Route: 048
  3. LISINOPRIL [Suspect]
     Indication: CEREBROVASCULAR ACCIDENT
     Dosage: 10 MG QDAY PO
     Route: 048
  4. LABETALOL HCL [Concomitant]
  5. AMLODIPINE [Concomitant]
  6. NIMODIPINE [Concomitant]

REACTIONS (12)
  - CEREBRAL HAEMORRHAGE [None]
  - CEREBRAL VENTRICLE DILATATION [None]
  - CEREBROVASCULAR ACCIDENT [None]
  - COMA [None]
  - DECEREBRATION [None]
  - DRUG INTERACTION [None]
  - HYPERTENSION [None]
  - HYPOTENSION [None]
  - JAW DISORDER [None]
  - OPISTHOTONUS [None]
  - PAIN [None]
  - RESPIRATORY FAILURE [None]
